FAERS Safety Report 10139746 (Version 1)
Quarter: 2014Q2

REPORT INFORMATION
  Report Type: Spontaneous
  Country: DK (occurrence: DE)
  Receive Date: 20140429
  Receipt Date: 20140429
  Transmission Date: 20141212
  Serious: Yes (Congenital Anomaly)
  Sender: FDA-Public Use
  Company Number: DE-FRI-1000066884

PATIENT
  Age: 0 Year
  Sex: 0

DRUGS (5)
  1. CITALOPRAM [Suspect]
     Dosage: 20 MG
     Route: 064
     Dates: start: 20110829
  2. CITALOPRAM [Suspect]
     Dosage: 10 MG
     Route: 064
     Dates: end: 20120430
  3. IMPFSTOFF GRIPPE [Suspect]
     Route: 064
     Dates: start: 20111227, end: 20111227
  4. L-THYROXIN [Concomitant]
     Dosage: 75 MCG
     Route: 064
     Dates: start: 20110829, end: 20120610
  5. FOLSAEURE [Concomitant]
     Indication: PROPHYLAXIS OF NEURAL TUBE DEFECT
     Route: 064

REACTIONS (2)
  - Deafness congenital [Unknown]
  - Foetal exposure during pregnancy [Unknown]
